FAERS Safety Report 8527417 (Version 2)
Quarter: 2015Q1

REPORT INFORMATION
  Report Type: Spontaneous
  Country: US (occurrence: US)
  Receive Date: 20120424
  Receipt Date: 20150218
  Transmission Date: 20150721
  Serious: Yes (Other)
  Sender: FDA-Public Use
  Company Number: US-BRISTOL-MYERS SQUIBB COMPANY-16521718

PATIENT
  Sex: Female
  Weight: 99.77 kg

DRUGS (7)
  1. VITAMIN B COMPLEX [Concomitant]
     Active Substance: CYANOCOBALAMIN\DEXPANTHENOL\NIACINAMIDE\PYRIDOXINE HYDROCHLORIDE\RIBOFLAVIN 5^-PHOSPHATE SODIUM\THIAMINE HYDROCHLORIDE\VITAMIN B COMPLEX
     Dosage: UNK UNK, QD
  2. FLAXSEED [Concomitant]
     Active Substance: FLAX SEED
     Dosage: UNK UNK, BID
  3. NEOMYCIN [Suspect]
     Active Substance: NEOMYCIN
     Indication: INVASIVE DUCTAL BREAST CARCINOMA
  4. CALCIUM [Concomitant]
     Active Substance: CALCIUM
     Dosage: UNK UNK, QD
  5. VITRON-C [Concomitant]
     Indication: MINERAL SUPPLEMENTATION
     Dosage: UNK UNK, QD
  6. TAXOL [Suspect]
     Active Substance: PACLITAXEL
     Indication: INVASIVE DUCTAL BREAST CARCINOMA
  7. VITAMIN C [Concomitant]
     Active Substance: ASCORBIC ACID

REACTIONS (3)
  - Blood pressure abnormal [Unknown]
  - Thyroid disorder [Unknown]
  - Neuropathy peripheral [Unknown]
